FAERS Safety Report 4877895-0 (Version None)
Quarter: 2006Q1

REPORT INFORMATION
  Report Type: 
  Country: None (occurrence: None)
  Receive Date: 20060109
  Receipt Date: 20060104
  Transmission Date: 20060701
  Serious: Yes (Life-Threatening)
  Sender: FDA-Public Use
  Company Number: 2006-136552-NL

PATIENT
  Age: 86 Year
  Sex: Male

DRUGS (3)
  1. DANAPAROID SODIUM [Suspect]
     Dosage: INTRAVENOUS (NOS)
     Route: 042
     Dates: start: 20050906, end: 20050916
  2. ENOXAPARIN SODIUM [Suspect]
     Dosage: SUBCUTANEOUS
     Route: 058
     Dates: start: 20050902, end: 20050906
  3. HEPARIN CALCIJM [Suspect]
     Dosage: .2ML SUBCUTANEOUS
     Route: 058
     Dates: start: 20050830, end: 20050901

REACTIONS (4)
  - CROSS SENSITIVITY REACTION [None]
  - PULMONARY EMBOLISM [None]
  - THROMBOCYTOPENIA [None]
  - VENOUS THROMBOSIS [None]
